FAERS Safety Report 8101652-5 (Version None)
Quarter: 2012Q1

REPORT INFORMATION
  Report Type: 
  Country: None (occurrence: None)
  Receive Date: 20120129
  Receipt Date: 20111011
  Transmission Date: 20120608
  Serious: No
  Sender: FDA-Public Use
  Company Number: US-ABBOTT-11P-163-0863325-00

PATIENT
  Sex: Female
  Weight: 81.72 kg

DRUGS (6)
  1. METHOTREXATE [Concomitant]
     Indication: PSORIATIC ARTHROPATHY
  2. HUMIRA [Suspect]
     Indication: PSORIATIC ARTHROPATHY
     Route: 058
     Dates: start: 20091101, end: 20110401
  3. FOLIC ACID [Concomitant]
     Indication: VITAMIN SUPPLEMENTATION
  4. HUMIRA [Suspect]
     Route: 058
     Dates: start: 20110801
  5. CITRICAL [Concomitant]
     Indication: MINERAL SUPPLEMENTATION
  6. NAPROXIN [Concomitant]
     Indication: PSORIATIC ARTHROPATHY

REACTIONS (4)
  - INJECTION SITE REACTION [None]
  - INJECTION SITE ERYTHEMA [None]
  - INJECTION SITE PRURITUS [None]
  - INJECTION SITE INDURATION [None]
